FAERS Safety Report 5933153-4 (Version None)
Quarter: 2008Q4

REPORT INFORMATION
  Report Type: 
  Country: None (occurrence: None)
  Receive Date: 20081023
  Receipt Date: 20060427
  Transmission Date: 20090506
  Serious: Yes (Life-Threatening, Other)
  Sender: FDA-Public Use
  Company Number: 2006AL001987

PATIENT
  Age: 70 Year

DRUGS (6)
  1. IBUPROFEN [Suspect]
     Dosage: PO
     Route: 048
     Dates: start: 20051201, end: 20060101
  2. ENULOSE [Suspect]
     Indication: CONSTIPATION
     Dosage: 10 ML; QD; PO
     Route: 048
     Dates: start: 20060116
  3. AUGMENTIN '125' [Concomitant]
  4. MOVICOL [Concomitant]
  5. OMEPRAZOLE [Concomitant]
  6. ACETAMINOPHEN [Concomitant]

REACTIONS (2)
  - DUODENAL ULCER HAEMORRHAGE [None]
  - JAUNDICE CHOLESTATIC [None]
